FAERS Safety Report 7424455-3 (Version None)
Quarter: 2011Q2

REPORT INFORMATION
  Report Type: 
  Country: None (occurrence: None)
  Receive Date: 20110419
  Receipt Date: 20110411
  Transmission Date: 20111010
  Serious: Yes (Disabling)
  Sender: FDA-Public Use
  Company Number: DK-BRACCO-000049

PATIENT
  Sex: Male
  Weight: 75 kg

DRUGS (8)
  1. LACTULOSE [Concomitant]
     Indication: CONSTIPATION
  2. CARDIZEM [Concomitant]
     Indication: HYPERTENSION
  3. APURIN [Concomitant]
  4. KALEORID [Concomitant]
     Indication: MINERAL SUPPLEMENTATION
     Route: 048
  5. DIURAL [Concomitant]
     Indication: HYPERTENSION
     Route: 048
  6. SELOZOK [Concomitant]
     Indication: HYPERTENSION
  7. ETALPHA [Concomitant]
     Indication: HYPERPARATHYROIDISM
  8. CONTRAST MEDIA [Suspect]
     Indication: SCAN WITH CONTRAST
     Route: 042
     Dates: start: 20020531, end: 20020531

REACTIONS (1)
  - NEPHROGENIC SYSTEMIC FIBROSIS [None]
